FAERS Safety Report 5409821-X (Version None)
Quarter: 2007Q3

REPORT INFORMATION
  Report Type: 
  Country: None (occurrence: None)
  Receive Date: 20070809
  Receipt Date: 20070802
  Transmission Date: 20080115
  Serious: Yes (Other)
  Sender: FDA-Public Use
  Company Number: B0482582A

PATIENT
  Sex: Male

DRUGS (1)
  1. NICABATE CQ 4MG LOZENGE [Suspect]
     Dosage: 4MG TWENTY TIMES PER DAY
     Route: 002
     Dates: start: 20040801

REACTIONS (2)
  - DEPENDENCE [None]
  - INTENTIONAL DRUG MISUSE [None]
